FAERS Safety Report 6431817-X (Version None)
Quarter: 2009Q4

REPORT INFORMATION
  Report Type: 
  Country: None (occurrence: None)
  Receive Date: 20091104
  Receipt Date: 20091027
  Transmission Date: 20100525
  Serious: Yes (Death)
  Sender: FDA-Public Use
  Company Number: CQT2-2009-00031

PATIENT
  Age: 72 Year
  Sex: Female
  Weight: 60 kg

DRUGS (11)
  1. ANAGRELIDE HCL [Suspect]
     Indication: ESSENTIAL THROMBOCYTHAEMIA
     Dosage: SEE IMAGE
     Route: 048
     Dates: start: 20070730, end: 20080109
  2. ANAGRELIDE HCL [Suspect]
     Indication: ESSENTIAL THROMBOCYTHAEMIA
     Dosage: SEE IMAGE
     Route: 048
     Dates: start: 20080110, end: 20080514
  3. ANAGRELIDE HCL [Suspect]
     Indication: ESSENTIAL THROMBOCYTHAEMIA
     Dosage: SEE IMAGE
     Route: 048
     Dates: start: 20080514, end: 20080729
  4. ANAGRELIDE HCL [Suspect]
     Indication: ESSENTIAL THROMBOCYTHAEMIA
     Dosage: SEE IMAGE
     Route: 048
     Dates: start: 20080729, end: 20081013
  5. ANAGRELIDE HCL [Suspect]
     Indication: ESSENTIAL THROMBOCYTHAEMIA
     Dosage: SEE IMAGE
     Route: 048
     Dates: start: 20081014
  6. ASPIRIN [Suspect]
     Indication: ESSENTIAL THROMBOCYTHAEMIA
     Dosage: 100 MG, 1X/DAY:QD, ORAL
     Route: 048
     Dates: start: 20070411
  7. NORVASC 9AMLODIPINE BESILATE) [Concomitant]
  8. LUCEN /01479301/(ESOMEPRAZOLE0 [Concomitant]
  9. FUROSEMIDE [Concomitant]
  10. KANRENOL (POTASSIUM CANRENOATE) [Concomitant]
  11. PREDNISONE TAB [Concomitant]

REACTIONS (2)
  - ACUTE PULMONARY OEDEMA [None]
  - ESSENTIAL THROMBOCYTHAEMIA [None]
